FAERS Safety Report 23553602 (Version 3)
Quarter: 2024Q2

REPORT INFORMATION
  Report Type: Spontaneous
  Country: US (occurrence: US)
  Receive Date: 20240222
  Receipt Date: 20240411
  Transmission Date: 20240716
  Serious: No
  Sender: FDA-Public Use
  Company Number: US-PFIZER INC-PV202400025066

PATIENT
  Age: 67 Year
  Sex: Female
  Weight: 52.154 kg

DRUGS (2)
  1. BOSULIF [Suspect]
     Active Substance: BOSUTINIB MONOHYDRATE
     Indication: Chronic myeloid leukaemia
     Dosage: 100 MG 3 TABLETS DAILY
     Dates: start: 201803
  2. FILGRASTIM-SNDZ [Suspect]
     Active Substance: FILGRASTIM-SNDZ
     Indication: Chronic myeloid leukaemia
     Dosage: 300 UG
     Dates: start: 201803

REACTIONS (5)
  - Illness [Unknown]
  - Fatigue [Unknown]
  - White blood cell count decreased [Unknown]
  - Infection [Unknown]
  - Pyrexia [Unknown]
